FAERS Safety Report 5584018-1 (Version None)
Quarter: 2008Q1

REPORT INFORMATION
  Report Type: 
  Country: None (occurrence: None)
  Receive Date: 20080103
  Receipt Date: 20071226
  Transmission Date: 20080703
  Serious: Yes (Hospitalization)
  Sender: FDA-Public Use
  Company Number: 2007BI025403

PATIENT
  Age: 36 Year
  Sex: Female

DRUGS (6)
  1. AVONEX [Suspect]
     Indication: MULTIPLE SCLEROSIS
     Dosage: 30 UG;QW;IM
     Route: 030
     Dates: start: 20070119, end: 20070701
  2. ACTHAR GEL-SYNTHETIC [Concomitant]
  3. CYMBALTA [Concomitant]
  4. TYLENOL [Concomitant]
  5. MULTI-VITAMIN [Concomitant]
  6. TYLENOL [Concomitant]

REACTIONS (5)
  - CONDITION AGGRAVATED [None]
  - DEPRESSION [None]
  - HYPOKALAEMIA [None]
  - MULTIPLE SCLEROSIS [None]
  - THERAPY REGIMEN CHANGED [None]
